FAERS Safety Report 6975057-4 (Version None)
Quarter: 2010Q3

REPORT INFORMATION
  Report Type: 
  Country: None (occurrence: None)
  Receive Date: 20100910
  Receipt Date: 20090130
  Transmission Date: 20110219
  Serious: No
  Sender: FDA-Public Use
  Company Number: US-WYE-H08006209

PATIENT
  Sex: Male

DRUGS (1)
  1. PROTONIX [Suspect]
     Dosage: UNKNOWN
     Route: 050

REACTIONS (3)
  - DRUG ADMINISTRATION ERROR [None]
  - FEEDING TUBE COMPLICATION [None]
  - VOMITING [None]
